FAERS Safety Report 7445515-7 (Version None)
Quarter: 2011Q2

REPORT INFORMATION
  Report Type: 
  Country: None (occurrence: None)
  Receive Date: 20110420
  Receipt Date: 20110307
  Transmission Date: 20111010
  Serious: No
  Sender: FDA-Public Use
  Company Number: 2011-00090

PATIENT
  Age: 54 Year
  Sex: Female
  Weight: 56.6996 kg

DRUGS (4)
  1. LISINOPRIL [Concomitant]
  2. HUMALOG [Concomitant]
  3. ZICAM COLD REMEDY PLUS RAPIDMELTS [Suspect]
     Dosage: 5 DAYS
     Dates: start: 20110226, end: 20110302
  4. LANTUS [Concomitant]

REACTIONS (2)
  - ANOSMIA [None]
  - AGEUSIA [None]
